FAERS Safety Report 16761638 (Version 6)
Quarter: 2020Q3

REPORT INFORMATION
  Report Type: Spontaneous
  Country: US (occurrence: US)
  Receive Date: 20190830
  Receipt Date: 20200825
  Transmission Date: 20201102
  Serious: Yes (Other)
  Sender: FDA-Public Use
  Company Number: US-SA-2019SA235092

PATIENT

DRUGS (3)
  1. LANTUS SOLOSTAR [Suspect]
     Active Substance: INSULIN GLARGINE
     Indication: TYPE 2 DIABETES MELLITUS
     Dosage: 40 U, QD 1 TIME DAILY, AM
     Route: 065
     Dates: start: 20100812
  2. LANTUS SOLOSTAR [Suspect]
     Active Substance: INSULIN GLARGINE
     Dosage: 27 IU, QD
     Route: 065
  3. LANTUS SOLOSTAR [Suspect]
     Active Substance: INSULIN GLARGINE
     Dosage: 29 UNITS SOMETIMES 28 UNITS, QD
     Route: 065

REACTIONS (10)
  - Rhinorrhoea [Unknown]
  - Rash [Unknown]
  - Glycosylated haemoglobin increased [Unknown]
  - Device operational issue [Unknown]
  - Hypoglycaemia [Unknown]
  - Injection site erythema [Unknown]
  - Product administered at inappropriate site [Unknown]
  - Diabetes mellitus inadequate control [Unknown]
  - Blood glucose fluctuation [Unknown]
  - Reaction to preservatives [Unknown]
